FAERS Safety Report 8826000 (Version 2)
Quarter: 2015Q2

REPORT INFORMATION
  Report Type: Report from Study
  Country: US (occurrence: US)
  Receive Date: 20121005
  Receipt Date: 20150415
  Transmission Date: 20150821
  Serious: Yes (Death)
  Sender: FDA-Public Use
  Company Number: US-ROCHE-1134943

PATIENT
  Sex: Female
  Weight: 45.5 kg

DRUGS (18)
  1. RITUXAN [Suspect]
     Active Substance: RITUXIMAB
     Indication: THROMBOCYTOPENIA
     Dosage: SUBSEQUENT DIOSES OF RITUXIMAB RECEIVED ON 19/JAN/2004, 26/JAN/2004, 02/FEB/2004, 09/FEB/2004
     Route: 042
     Dates: start: 20040119, end: 20040209
  2. RITUXAN [Suspect]
     Active Substance: RITUXIMAB
     Indication: OFF LABEL USE
  3. FERROUS GLUCONATE [Concomitant]
     Active Substance: FERROUS GLUCONATE
     Route: 065
  4. TYLENOL [Concomitant]
     Active Substance: ACETAMINOPHEN
     Dosage: 2 CAPS PRN (AS NEEDED)
     Route: 048
  5. DEBROX [Concomitant]
     Active Substance: CARBAMIDE PEROXIDE
     Dosage: 6.5 %, 1 GGT BOTH EARS
     Route: 065
  6. VITAMIN C [Concomitant]
     Active Substance: ASCORBIC ACID
     Dosage: HS
     Route: 065
  7. MEPHYTON [Concomitant]
     Active Substance: PHYTONADIONE
     Route: 065
  8. ACTOS [Concomitant]
     Active Substance: PIOGLITAZONE HYDROCHLORIDE
     Route: 065
  9. COMBIVENT [Concomitant]
     Active Substance: ALBUTEROL SULFATE\IPRATROPIUM BROMIDE
     Dosage: 2 PUFFS PRN (AS NEEDED)
     Route: 045
  10. LOTENSIN (UNITED STATES) [Concomitant]
     Route: 065
  11. PANGLOBULIN [Concomitant]
     Active Substance: HUMAN IMMUNOGLOBULIN G
     Dosage: DAY 1 - 5
     Route: 042
     Dates: start: 20040106, end: 20040110
  12. FUROSEMIDE. [Concomitant]
     Active Substance: FUROSEMIDE
     Dosage: MONDAY AND THRUSDAY
     Route: 065
  13. DETROL LA [Concomitant]
     Active Substance: TOLTERODINE TARTRATE
     Route: 065
  14. FLOVENT HFA [Concomitant]
     Active Substance: FLUTICASONE PROPIONATE
     Route: 045
  15. NEURONTIN [Concomitant]
     Active Substance: GABAPENTIN
     Dosage: 6 PM
     Route: 065
  16. NEURONTIN [Concomitant]
     Active Substance: GABAPENTIN
     Dosage: HS (AT NIGHT)
     Route: 065
  17. MIACALCIN NASAL SPRAY [Concomitant]
     Dosage: 1 SPRAY ALTERNATE NOSTRIL
     Route: 045
  18. LIDOCAINE. [Concomitant]
     Active Substance: LIDOCAINE
     Dosage: LEFT SHOULDER
     Route: 065

REACTIONS (1)
  - Death [Fatal]
